FAERS Safety Report 7445606-0 (Version None)
Quarter: 2011Q2

REPORT INFORMATION
  Report Type: 
  Country: None (occurrence: None)
  Receive Date: 20110429
  Receipt Date: 20110420
  Transmission Date: 20111010
  Serious: Yes (Other)
  Sender: FDA-Public Use
  Company Number: FR-ROCHE-772352

PATIENT
  Age: 68 Year
  Sex: Male

DRUGS (2)
  1. PLATINUM [Concomitant]
     Indication: LUNG ADENOCARCINOMA
     Dates: start: 20080601, end: 20090101
  2. BEVACIZUMAB [Suspect]
     Indication: LUNG ADENOCARCINOMA
     Route: 065
     Dates: start: 20080601, end: 20090301

REACTIONS (2)
  - LARGE INTESTINE PERFORATION [None]
  - TRIGEMINAL NEURALGIA [None]
